FAERS Safety Report 7958709-9 (Version None)
Quarter: 2011Q4

REPORT INFORMATION
  Report Type: 
  Country: None (occurrence: None)
  Receive Date: 20111206
  Receipt Date: 20111125
  Transmission Date: 20120403
  Serious: Yes (Other)
  Sender: FDA-Public Use
  Company Number: GB-TEVA-306913ISR

PATIENT
  Age: 44 Year
  Sex: Female
  Weight: 52.1 kg

DRUGS (5)
  1. VALPROIC ACID [Suspect]
     Dates: start: 20100426, end: 20110701
  2. CITALOPRAM [Concomitant]
  3. OXYBUTYNIN [Concomitant]
  4. MIRENA [Suspect]
     Route: 015
     Dates: start: 20071113, end: 20111012
  5. LORATADINE [Concomitant]

REACTIONS (2)
  - ABORTION SPONTANEOUS [None]
  - PREGNANCY WITH CONTRACEPTIVE DEVICE [None]
